FAERS Safety Report 7109872-3 (Version None)
Quarter: 2010Q4

REPORT INFORMATION
  Report Type: 
  Country: None (occurrence: None)
  Receive Date: 20101118
  Receipt Date: 20101104
  Transmission Date: 20110411
  Serious: Yes (Other)
  Sender: FDA-Public Use
  Company Number: US-RB-015073-10

PATIENT
  Sex: Female

DRUGS (1)
  1. UNSPECIFIED DELSYM [Suspect]
     Dosage: DRANK 2 BOTTLES
     Route: 048

REACTIONS (4)
  - DIZZINESS [None]
  - OVERDOSE [None]
  - SUICIDAL IDEATION [None]
  - VOMITING [None]
